FAERS Safety Report 8188443-4 (Version None)
Quarter: 2012Q1

REPORT INFORMATION
  Report Type: 
  Country: None (occurrence: None)
  Receive Date: 20120306
  Receipt Date: 20120228
  Transmission Date: 20120608
  Serious: Yes (Other)
  Sender: FDA-Public Use
  Company Number: PHHY2011NL96439

PATIENT
  Sex: Male

DRUGS (13)
  1. ZOMETA [Suspect]
     Dosage: 4 MG/ /5ML ONCE PER 28 DAYS (IV 350 ML/HOUR)
     Dates: start: 20111201
  2. CALCIUM D SANDOZ [Concomitant]
     Dosage: 1 DF, (600MG/400IE), QD
  3. ZOMETA [Suspect]
     Dosage: 4 MG/ /5ML ONCE PER 28 DAYS (IV 350 ML/HOUR)
     Dates: start: 20111006
  4. ZOMETA [Suspect]
     Dosage: 4 MG/ /100ML ONCE PER 28 DAYS (IV 350 ML/HOUR)
     Dates: start: 20111228
  5. MORPHINE [Concomitant]
  6. ZOMETA [Suspect]
     Dosage: 4 MG/ /5ML ONCE PER 28 DAYS (IV 350 ML/HOUR)
     Dates: start: 20111031
  7. ANANDRON [Concomitant]
     Dosage: 150, ONCE
  8. AVODART [Concomitant]
     Dosage: 0.5 MG.ONCE
  9. OXYCODONE HCL [Concomitant]
     Dosage: 10 MG, SIX TIMES
  10. ZOMETA [Suspect]
     Dosage: 4 MG/ /5ML ONCE PER 28 DAYS (IV 350 ML/HOUR)
     Dates: start: 20110218
  11. LEUPROLIDE ACETATE [Concomitant]
     Dosage: 30 MG, ONCE EVERY SIX MONTHS
  12. CASODEX [Concomitant]
  13. ZOMETA [Suspect]
     Indication: PROSTATE CANCER METASTATIC
     Dosage: 4 MG/ /5ML ONCE PER 28 DAYS (IV 350 ML/HOUR)
     Dates: start: 20110210

REACTIONS (6)
  - BACK PAIN [None]
  - HEADACHE [None]
  - GAIT DISTURBANCE [None]
  - NECK PAIN [None]
  - BONE PAIN [None]
  - GENERAL PHYSICAL HEALTH DETERIORATION [None]
